FAERS Safety Report 5707664-0 (Version None)
Quarter: 2008Q2

REPORT INFORMATION
  Report Type: 
  Country: None (occurrence: None)
  Receive Date: 20080416
  Receipt Date: 20080407
  Transmission Date: 20081010
  Serious: Yes (Other)
  Sender: FDA-Public Use
  Company Number: MY-PFIZER INC-2008031355

PATIENT
  Age: 54 Year
  Sex: Female

DRUGS (1)
  1. SULPERAZON [Suspect]
     Indication: SEPSIS
     Dosage: DAILY DOSE:2GRAM-FREQ:DAILY

REACTIONS (3)
  - COAGULOPATHY [None]
  - GASTROINTESTINAL HAEMORRHAGE [None]
  - HAEMATEMESIS [None]
